FAERS Safety Report 21647868 (Version 1)
Quarter: 2022Q4

REPORT INFORMATION
  Report Type: Spontaneous
  Country: US (occurrence: US)
  Receive Date: 20221128
  Receipt Date: 20221128
  Transmission Date: 20230112
  Serious: Yes (Other)
  Sender: FDA-Public Use
  Company Number: US-KVK-TECH, INC-20221000086

PATIENT

DRUGS (1)
  1. DEXTROAMPHETAMINE SULFATE [Suspect]
     Active Substance: DEXTROAMPHETAMINE SULFATE
     Indication: Product used for unknown indication
     Dosage: UNKNOWN DOSE
     Route: 065

REACTIONS (8)
  - Feeling abnormal [Unknown]
  - Apathy [Unknown]
  - Depressed level of consciousness [Unknown]
  - Tension [Unknown]
  - Irritability [Unknown]
  - Headache [Unknown]
  - Hypertension [Unknown]
  - Drug ineffective [Unknown]
